FAERS Safety Report 6247918-5 (Version None)
Quarter: 2009Q2

REPORT INFORMATION
  Report Type: 
  Country: None (occurrence: None)
  Receive Date: 20090626
  Receipt Date: 20090615
  Transmission Date: 20091009
  Serious: Yes (Other)
  Sender: FDA-Public Use
  Company Number: PHHY2009IE12497

PATIENT
  Sex: Male

DRUGS (4)
  1. CLOZARIL [Suspect]
     Indication: SCHIZOPHRENIA
     Dosage: 125MG MANE AND 225MG NOCTE
     Route: 048
     Dates: start: 20070917
  2. CLOZARIL [Suspect]
     Dosage: 137.5MG MANE AND 225MG NOCTE
     Route: 048
  3. CLOZARIL [Suspect]
     Dosage: 125MG MANE AND 225MG NOCTE
     Route: 048
  4. CLOZARIL [Suspect]
     Dosage: 362.5MG, DAILY
     Route: 048

REACTIONS (7)
  - BLOOD PRESSURE DECREASED [None]
  - BUNDLE BRANCH BLOCK RIGHT [None]
  - CHEST PAIN [None]
  - DIZZINESS [None]
  - ORTHOSTATIC HYPOTENSION [None]
  - PULSE ABNORMAL [None]
  - TACHYCARDIA [None]
